FAERS Safety Report 16396579 (Version 2)
Quarter: 2019Q2

REPORT INFORMATION
  Report Type: Report from Study
  Country: JP (occurrence: JP)
  Receive Date: 20190606
  Receipt Date: 20190625
  Transmission Date: 20190711
  Serious: Yes (Death, Life-Threatening, Other)
  Sender: FDA-Public Use
  Company Number: JP-ACCORD-130556

PATIENT
  Age: 84 Year
  Sex: Male

DRUGS (2)
  1. FOLINIC ACID [Concomitant]
     Active Substance: LEUCOVORIN
     Indication: DIFFUSE LARGE B-CELL LYMPHOMA
  2. METHOTREXATE. [Suspect]
     Active Substance: METHOTREXATE
     Indication: DIFFUSE LARGE B-CELL LYMPHOMA
     Dosage: HIGH DOSE, 3.5 G/M^2
     Route: 042

REACTIONS (6)
  - Pancytopenia [Fatal]
  - Hypernatraemia [Fatal]
  - Pneumonia [Fatal]
  - Renal impairment [Fatal]
  - Thrombosis [Fatal]
  - Disseminated intravascular coagulation [Fatal]
